FAERS Safety Report 9642041 (Version 1)
Quarter: 2013Q4

REPORT INFORMATION
  Report Type: Spontaneous
  Country: GB (occurrence: GB)
  Receive Date: 20131023
  Receipt Date: 20131023
  Transmission Date: 20140711
  Serious: Yes (Hospitalization, Disabling)
  Sender: FDA-Public Use
  Company Number: GB-ABBVIE-13P-167-1158877-00

PATIENT
  Age: 36 Year
  Sex: Male

DRUGS (1)
  1. HUMIRA [Suspect]
     Indication: CROHN^S DISEASE
     Route: 058
     Dates: start: 201305, end: 201308

REACTIONS (6)
  - Paraparesis [Unknown]
  - Multiple sclerosis relapse [Recovering/Resolving]
  - Nervous system disorder [Unknown]
  - Diplopia [Unknown]
  - Mobility decreased [Unknown]
  - Demyelination [Unknown]
